FAERS Safety Report 12553404 (Version 1)
Quarter: 2016Q3

REPORT INFORMATION
  Report Type: Spontaneous
  Country: DE (occurrence: DE)
  Receive Date: 20160713
  Receipt Date: 20160713
  Transmission Date: 20161109
  Serious: Yes (Hospitalization)
  Sender: FDA-Public Use
  Company Number: DE-JNJFOC-20160706083

PATIENT
  Age: 62 Year
  Sex: Male

DRUGS (47)
  1. ZYPREXA [Interacting]
     Active Substance: OLANZAPINE
     Indication: THINKING ABNORMAL
     Route: 065
     Dates: start: 20150225
  2. ZYPREXA [Interacting]
     Active Substance: OLANZAPINE
     Indication: DEPRESSION
     Route: 065
     Dates: start: 20150223, end: 20150224
  3. ZYPREXA [Interacting]
     Active Substance: OLANZAPINE
     Indication: DEPRESSION
     Route: 065
     Dates: start: 20150225
  4. STANGYL [Interacting]
     Active Substance: TRIMIPRAMINE MALEATE
     Indication: THINKING ABNORMAL
     Route: 065
     Dates: start: 20150212, end: 20150212
  5. STANGYL [Interacting]
     Active Substance: TRIMIPRAMINE MALEATE
     Indication: DEPRESSION
     Route: 065
     Dates: start: 20150218, end: 20150222
  6. STANGYL [Interacting]
     Active Substance: TRIMIPRAMINE MALEATE
     Indication: DEPRESSION
     Route: 065
     Dates: start: 20150213, end: 20150216
  7. SERTRALIN STADA [Interacting]
     Active Substance: SERTRALINE HYDROCHLORIDE
     Indication: THINKING ABNORMAL
     Route: 065
     Dates: start: 20150219, end: 20150301
  8. SERTRALIN STADA [Interacting]
     Active Substance: SERTRALINE HYDROCHLORIDE
     Indication: DEPRESSION
     Route: 065
     Dates: start: 20150219, end: 20150301
  9. LYRICA [Concomitant]
     Active Substance: PREGABALIN
     Route: 065
  10. RISPERDAL [Suspect]
     Active Substance: RISPERIDONE
     Indication: THINKING ABNORMAL
     Route: 048
     Dates: start: 201503, end: 20150401
  11. FLUANXOL [Interacting]
     Active Substance: FLUPENTIXOL
     Indication: DEPRESSION
     Route: 048
     Dates: start: 20150305, end: 20150307
  12. ZYPREXA [Interacting]
     Active Substance: OLANZAPINE
     Indication: THINKING ABNORMAL
     Route: 065
     Dates: start: 20150127, end: 20150129
  13. ZYPREXA [Interacting]
     Active Substance: OLANZAPINE
     Indication: DEPRESSION
     Dosage: 10-15 MG
     Route: 065
     Dates: start: 20150202, end: 20150222
  14. STANGYL [Interacting]
     Active Substance: TRIMIPRAMINE MALEATE
     Indication: THINKING ABNORMAL
     Route: 065
     Dates: start: 20150213, end: 20150216
  15. STANGYL [Interacting]
     Active Substance: TRIMIPRAMINE MALEATE
     Indication: THINKING ABNORMAL
     Route: 065
     Dates: start: 20150217, end: 20150217
  16. SERTRALIN STADA [Interacting]
     Active Substance: SERTRALINE HYDROCHLORIDE
     Indication: THINKING ABNORMAL
     Route: 065
     Dates: start: 20150317, end: 20150408
  17. RISPERDAL [Suspect]
     Active Substance: RISPERIDONE
     Indication: THINKING ABNORMAL
     Route: 048
     Dates: start: 20150307, end: 20150312
  18. FLUANXOL [Interacting]
     Active Substance: FLUPENTIXOL
     Indication: THINKING ABNORMAL
     Route: 048
     Dates: start: 20150305, end: 20150307
  19. FLUANXOL [Interacting]
     Active Substance: FLUPENTIXOL
     Indication: THINKING ABNORMAL
     Route: 048
     Dates: start: 20150308, end: 20150310
  20. FLUANXOL [Interacting]
     Active Substance: FLUPENTIXOL
     Indication: DEPRESSION
     Route: 048
     Dates: start: 20150311
  21. ZYPREXA [Interacting]
     Active Substance: OLANZAPINE
     Indication: THINKING ABNORMAL
     Route: 065
     Dates: start: 20150130, end: 20150201
  22. STANGYL [Interacting]
     Active Substance: TRIMIPRAMINE MALEATE
     Indication: THINKING ABNORMAL
     Route: 065
     Dates: start: 20150223, end: 20150326
  23. OXYCODON [Concomitant]
     Active Substance: OXYCODONE
     Route: 065
     Dates: start: 20150129
  24. RISPERDAL [Suspect]
     Active Substance: RISPERIDONE
     Indication: THINKING ABNORMAL
     Route: 048
     Dates: start: 20150305, end: 20150306
  25. RISPERDAL [Suspect]
     Active Substance: RISPERIDONE
     Indication: THINKING ABNORMAL
     Route: 048
     Dates: start: 2015
  26. FLUANXOL [Interacting]
     Active Substance: FLUPENTIXOL
     Indication: DEPRESSION
     Route: 048
     Dates: start: 20131120, end: 20150304
  27. ZYPREXA [Interacting]
     Active Substance: OLANZAPINE
     Indication: THINKING ABNORMAL
     Route: 065
     Dates: start: 20150223, end: 20150224
  28. SERTRALIN STADA [Interacting]
     Active Substance: SERTRALINE HYDROCHLORIDE
     Indication: DEPRESSION
     Route: 065
     Dates: start: 20150317, end: 20150408
  29. SERTRALIN STADA [Interacting]
     Active Substance: SERTRALINE HYDROCHLORIDE
     Indication: DEPRESSION
     Dosage: 25-100 MG
     Route: 065
     Dates: start: 20150213, end: 20150217
  30. OXYCODON [Concomitant]
     Active Substance: OXYCODONE
     Route: 065
     Dates: end: 20150128
  31. FLUANXOL [Interacting]
     Active Substance: FLUPENTIXOL
     Indication: DEPRESSION
     Route: 048
     Dates: start: 20150308, end: 20150310
  32. STANGYL [Interacting]
     Active Substance: TRIMIPRAMINE MALEATE
     Indication: DEPRESSION
     Route: 065
     Dates: start: 20150223, end: 20150326
  33. FLUANXOL [Interacting]
     Active Substance: FLUPENTIXOL
     Indication: THINKING ABNORMAL
     Route: 048
     Dates: start: 20131120, end: 20150304
  34. ZYPREXA [Interacting]
     Active Substance: OLANZAPINE
     Indication: DEPRESSION
     Route: 065
     Dates: start: 20150130, end: 20150201
  35. SERTRALIN STADA [Interacting]
     Active Substance: SERTRALINE HYDROCHLORIDE
     Indication: THINKING ABNORMAL
     Dosage: 25-100 MG
     Route: 065
     Dates: start: 20150213, end: 20150217
  36. RISPERDAL [Suspect]
     Active Substance: RISPERIDONE
     Indication: DEPRESSION
     Route: 048
     Dates: start: 20150307, end: 20150312
  37. FLUANXOL [Interacting]
     Active Substance: FLUPENTIXOL
     Indication: THINKING ABNORMAL
     Route: 048
     Dates: start: 20150311
  38. ZYPREXA [Interacting]
     Active Substance: OLANZAPINE
     Indication: THINKING ABNORMAL
     Dosage: 10-15 MG
     Route: 065
     Dates: start: 20150202, end: 20150222
  39. ZYPREXA [Interacting]
     Active Substance: OLANZAPINE
     Indication: DEPRESSION
     Route: 065
     Dates: start: 20150127, end: 20150129
  40. STANGYL [Interacting]
     Active Substance: TRIMIPRAMINE MALEATE
     Indication: THINKING ABNORMAL
     Route: 065
     Dates: start: 20150218, end: 20150222
  41. STANGYL [Interacting]
     Active Substance: TRIMIPRAMINE MALEATE
     Indication: DEPRESSION
     Route: 065
     Dates: start: 20150217, end: 20150217
  42. SERTRALIN STADA [Interacting]
     Active Substance: SERTRALINE HYDROCHLORIDE
     Indication: DEPRESSION
     Route: 065
     Dates: start: 20150302, end: 20150316
  43. RISPERDAL [Suspect]
     Active Substance: RISPERIDONE
     Indication: DEPRESSION
     Route: 048
     Dates: start: 201503, end: 20150401
  44. RISPERDAL [Suspect]
     Active Substance: RISPERIDONE
     Indication: DEPRESSION
     Route: 048
     Dates: start: 20150305, end: 20150306
  45. RISPERDAL [Suspect]
     Active Substance: RISPERIDONE
     Indication: DEPRESSION
     Route: 048
     Dates: start: 2015
  46. STANGYL [Interacting]
     Active Substance: TRIMIPRAMINE MALEATE
     Indication: DEPRESSION
     Route: 065
     Dates: start: 20150212, end: 20150212
  47. SERTRALIN STADA [Interacting]
     Active Substance: SERTRALINE HYDROCHLORIDE
     Indication: THINKING ABNORMAL
     Route: 065
     Dates: start: 20150302, end: 20150316

REACTIONS (2)
  - Drug interaction [Unknown]
  - Parkinsonism [Recovered/Resolved]

NARRATIVE: CASE EVENT DATE: 20150305
